FAERS Safety Report 17307092 (Version 8)
Quarter: 2024Q1

REPORT INFORMATION
  Report Type: Other
  Country: IT (occurrence: None)
  Receive Date: 20200123
  Receipt Date: 20240219
  Transmission Date: 20240410
  Serious: Yes (Hospitalization)
  Sender: FDA-Public Use
  Company Number: IT-ROCHE-2312990

PATIENT
  Age: 51 Year
  Sex: Female
  Weight: 49 kg

DRUGS (13)
  1. TAXOL [Suspect]
     Active Substance: PACLITAXEL
     Indication: HER2 positive breast cancer
     Dosage: OTHER?MOST RECENT DOSE PRIOR TO AE 16/APR/2020
     Route: 042
     Dates: start: 20190212, end: 20190423
  2. PERJETA [Suspect]
     Active Substance: PERTUZUMAB
     Indication: HER2 positive breast cancer
     Route: 042
     Dates: start: 20190212, end: 20190212
  3. PERJETA [Suspect]
     Active Substance: PERTUZUMAB
     Dosage: ONGOING
     Route: 042
     Dates: start: 20190305
  4. HERCEPTIN [Suspect]
     Active Substance: TRASTUZUMAB
     Indication: HER2 positive breast cancer
     Dosage: MOST RECENT DOSE PRIOR TO THE EVENT: 05/MAR/2019
     Route: 042
     Dates: start: 20190212, end: 20190212
  5. CALCIUM CARBONATE [Concomitant]
     Active Substance: CALCIUM CARBONATE
     Dosage: ONGOING = NOT CHECKED
     Dates: end: 20210802
  6. CHOLECALCIFEROL [Concomitant]
     Active Substance: CHOLECALCIFEROL
     Dosage: ONGOING = CHECKED
  7. LORMETAZEPAM [Concomitant]
     Active Substance: LORMETAZEPAM
     Dosage: ONGOING = NOT CHECKED
     Dates: end: 20190615
  8. DEXAMETHASONE [Concomitant]
     Active Substance: DEXAMETHASONE
     Dosage: ONGOING = NOT CHECKED
     Dates: end: 20200105
  9. ACETAMINOPHEN\CODEINE PHOSPHATE [Concomitant]
     Active Substance: ACETAMINOPHEN\CODEINE PHOSPHATE
     Dosage: ONGOING = NOT CHECKED
     Dates: end: 20230403
  10. DEXAMETHASONE [Concomitant]
     Active Substance: DEXAMETHASONE
     Dosage: ONGOING = NOT CHECKED
     Dates: start: 20190212, end: 20190416
  11. RANITIDINE [Concomitant]
     Active Substance: RANITIDINE
     Dosage: ONGOING = NOT CHECKED
     Dates: start: 20190212, end: 20190416
  12. CAPTOPRIL [Concomitant]
     Active Substance: CAPTOPRIL
     Dosage: ONGOING = NOT CHECKED
     Dates: start: 20190503, end: 20190503
  13. ZOMETA [Concomitant]
     Active Substance: ZOLEDRONIC ACID
     Dates: start: 20190305, end: 20221013

REACTIONS (1)
  - Respiratory tract infection [Recovered/Resolved with Sequelae]

NARRATIVE: CASE EVENT DATE: 20190430
